FAERS Safety Report 7237463-2 (Version None)
Quarter: 2011Q1

REPORT INFORMATION
  Report Type: 
  Country: None (occurrence: None)
  Receive Date: 20110121
  Receipt Date: 20110117
  Transmission Date: 20110831
  Serious: Yes (Other)
  Sender: FDA-Public Use
  Company Number: GB-TEVA-263825ISR

PATIENT
  Age: 25 Year
  Sex: Female

DRUGS (1)
  1. MORPHINE [Suspect]
     Dates: start: 20110110

REACTIONS (1)
  - SKIN REACTION [None]
